FAERS Safety Report 4851761-9 (Version None)
Quarter: 2005Q4

REPORT INFORMATION
  Report Type: 
  Country: None (occurrence: None)
  Receive Date: 20051209
  Receipt Date: 20051124
  Transmission Date: 20060501
  Serious: Yes (Death, Life-Threatening, Hospitalization, Disabling)
  Sender: FDA-Public Use
  Company Number: 2005-02249

PATIENT
  Age: 62 Year
  Sex: Male

DRUGS (1)
  1. VELCADE [Suspect]
     Indication: MULTIPLE MYELOMA
     Dosage: 2.50 MG, INTRAVENOUS
     Route: 042
     Dates: start: 20050905, end: 20050912

REACTIONS (21)
  - ANTI FACTOR VII ANTIBODY POSITIVE [None]
  - ANURIA [None]
  - ASTHENIA [None]
  - BLOOD CALCIUM DECREASED [None]
  - BLOOD POTASSIUM INCREASED [None]
  - CARDIOPULMONARY FAILURE [None]
  - COAGULOPATHY [None]
  - DEHYDRATION [None]
  - DYSSTASIA [None]
  - FATIGUE [None]
  - GAMMA-GLUTAMYLTRANSFERASE [None]
  - GINGIVAL BLEEDING [None]
  - HAEMODIALYSIS [None]
  - HAEMOGLOBIN DECREASED [None]
  - MOUTH HAEMORRHAGE [None]
  - NEUTROPHIL COUNT DECREASED [None]
  - POST PROCEDURAL HAEMORRHAGE [None]
  - PROTHROMBIN TIME PROLONGED [None]
  - PYREXIA [None]
  - RENAL FAILURE [None]
  - SINUS TACHYCARDIA [None]
